FAERS Safety Report 8016016-2 (Version None)
Quarter: 2011Q4

REPORT INFORMATION
  Report Type: 
  Country: None (occurrence: None)
  Receive Date: 20111230
  Receipt Date: 20111230
  Transmission Date: 20120403
  Serious: Yes (Hospitalization)
  Sender: FDA-Public Use
  Company Number: None

PATIENT
  Age: 55 Year
  Sex: Male

DRUGS (1)
  1. CYTARABINE [Suspect]

REACTIONS (9)
  - HYPERHIDROSIS [None]
  - ENURESIS [None]
  - MIOSIS [None]
  - SKIN DISCOLOURATION [None]
  - BLOOD PRESSURE DECREASED [None]
  - PUPILLARY REFLEX IMPAIRED [None]
  - PALLOR [None]
  - ABDOMINAL RIGIDITY [None]
  - ANXIETY [None]
